FAERS Safety Report 5162003-1 (Version None)
Quarter: 2006Q4

REPORT INFORMATION
  Report Type: 
  Country: None (occurrence: None)
  Receive Date: 20061121
  Receipt Date: 20061106
  Transmission Date: 20070319
  Serious: Yes (Other)
  Sender: FDA-Public Use
  Company Number: B0444992A

PATIENT
  Age: 35 Year
  Sex: Female

DRUGS (1)
  1. FLOLAN [Suspect]
     Indication: DRUG USE FOR UNKNOWN INDICATION
     Dosage: INTRAVENOUS
     Route: 042
     Dates: start: 20010801

REACTIONS (10)
  - BLOOD PRESSURE DECREASED [None]
  - BRONCHITIS [None]
  - CELLULITIS [None]
  - ENTERITIS INFECTIOUS [None]
  - EPISTAXIS [None]
  - GRANULOCYTE COUNT DECREASED [None]
  - PAIN IN JAW [None]
  - PLATELET COUNT DECREASED [None]
  - PNEUMONIA [None]
  - SHUNT INFECTION [None]
